FAERS Safety Report 6832259-5 (Version None)
Quarter: 2010Q2

REPORT INFORMATION
  Report Type: 
  Country: None (occurrence: None)
  Receive Date: 20100629
  Receipt Date: 20100614
  Transmission Date: 20101027
  Serious: Yes (Hospitalization)
  Sender: FDA-Public Use
  Company Number: 20100614CINRY1516

PATIENT
  Age: 11 Year
  Sex: Female

DRUGS (1)
  1. CINRYZE [Suspect]
     Indication: DRUG USE FOR UNKNOWN INDICATION
     Dosage: (3 IN 1 WK),INTRAVENOUS
     Route: 042

REACTIONS (2)
  - ABDOMINAL PAIN [None]
  - VOMITING [None]
